FAERS Safety Report 9576040 (Version 1)
Quarter: 2013Q4

REPORT INFORMATION
  Report Type: Spontaneous
  Country: US (occurrence: US)
  Receive Date: 20131001
  Receipt Date: 20131001
  Transmission Date: 20140711
  Serious: No
  Sender: FDA-Public Use
  Company Number: US-AMGEN-USASP2013000521

PATIENT
  Age: 54 Year
  Sex: Female
  Weight: 77.1 kg

DRUGS (5)
  1. ENBREL [Suspect]
     Indication: PRODUCT USED FOR UNKNOWN INDICATION
     Dosage: 50 MG, EVERY WEEK
     Route: 058
  2. FLUOXETINE [Concomitant]
     Dosage: 10 MG, UNK
  3. OMEPRAZOLE [Concomitant]
     Dosage: 10 MG, UNK
  4. TYLENOL                            /00020001/ [Concomitant]
     Dosage: 650 MG, UNK
  5. MUCINEX DM [Concomitant]
     Dosage: UNK

REACTIONS (2)
  - Chest discomfort [Unknown]
  - Upper respiratory tract infection [Unknown]
